FAERS Safety Report 7573892-5 (Version None)
Quarter: 2011Q2

REPORT INFORMATION
  Report Type: 
  Country: None (occurrence: None)
  Receive Date: 20110627
  Receipt Date: 20110616
  Transmission Date: 20111010
  Serious: Yes (Hospitalization)
  Sender: FDA-Public Use
  Company Number: B0686794A

PATIENT
  Sex: Female

DRUGS (8)
  1. POLLAKISU [Concomitant]
     Indication: POLLAKIURIA
     Dosage: 2IUAX PER DAY
     Route: 048
     Dates: start: 20020430, end: 20040330
  2. UNKNOWN DRUG [Concomitant]
     Dosage: 2G PER DAY
     Route: 048
     Dates: start: 20020723, end: 20040608
  3. ZOLPIDEM [Concomitant]
     Indication: INSOMNIA
     Dosage: 5MG PER DAY
     Route: 065
  4. ZOLPIDEM [Concomitant]
     Indication: INSOMNIA
     Route: 048
     Dates: start: 20040126, end: 20050201
  5. ALPRAZOLAM [Concomitant]
     Dosage: 11IUAX PER DAY
     Route: 048
     Dates: start: 20040109, end: 20040120
  6. PAXIL [Suspect]
     Indication: ANXIETY DISORDER
     Dosage: 20MG PER DAY
     Route: 048
     Dates: start: 20040101, end: 20040601
  7. METOPROLOL TARTRATE [Concomitant]
     Dosage: 2IUAX PER DAY
     Route: 048
     Dates: start: 20020319, end: 20040608
  8. PAXIL [Suspect]
     Dosage: 20MG PER DAY
     Route: 048
     Dates: start: 20041001, end: 20061207

REACTIONS (15)
  - MYOCLONUS [None]
  - HYPOAESTHESIA [None]
  - DYSGEUSIA [None]
  - LACERATION [None]
  - SUICIDE ATTEMPT [None]
  - SEROTONIN SYNDROME [None]
  - LOWER LIMB FRACTURE [None]
  - GLOSSODYNIA [None]
  - FALL [None]
  - RADIUS FRACTURE [None]
  - CONTUSION [None]
  - DRUG WITHDRAWAL SYNDROME [None]
  - IRRITABILITY [None]
  - DEPRESSION [None]
  - PARAESTHESIA ORAL [None]
